FAERS Safety Report 12876021 (Version 1)
Quarter: 2016Q4

REPORT INFORMATION
  Report Type: Spontaneous
  Country: US (occurrence: US)
  Receive Date: 20161020
  Receipt Date: 20161020
  Transmission Date: 20170207
  Serious: No
  Sender: FDA-Public Use
  Company Number: None

PATIENT
  Age: 46 Year
  Sex: Male

DRUGS (1)
  1. STIVARGA [Suspect]
     Active Substance: REGORAFENIB
     Indication: COLON CANCER
     Dosage: 40MG 2 TABS EVERY 21 DAYS ORAL
     Route: 048
     Dates: start: 20160706, end: 20160823

REACTIONS (2)
  - Blister [None]
  - Therapy cessation [None]

NARRATIVE: CASE EVENT DATE: 20160823
